FAERS Safety Report 24392166 (Version 1)
Quarter: 2024Q4

REPORT INFORMATION
  Report Type: Spontaneous
  Country: SE (occurrence: SE)
  Receive Date: 20241003
  Receipt Date: 20241003
  Transmission Date: 20250115
  Serious: Yes (Life-Threatening, Hospitalization, Other)
  Sender: ALEXION PHARMACEUTICALS
  Company Number: None

PATIENT
  Age: 71 Year

DRUGS (18)
  1. TICAGRELOR [Suspect]
     Active Substance: TICAGRELOR
     Indication: Anticoagulant therapy
     Dosage: LADDNINGSDOS 2 TABLETTER, D?REFTER 1 TABLETT.
  2. TICAGRELOR [Suspect]
     Active Substance: TICAGRELOR
     Dosage: LADDNINGSDOS 2 TABLETTER, D?REFTER 1 TABLETT.
  3. TICAGRELOR [Suspect]
     Active Substance: TICAGRELOR
     Dosage: LADDNINGSDOS 2 TABLETTER, D?REFTER 1 TABLETT.
  4. TICAGRELOR [Suspect]
     Active Substance: TICAGRELOR
     Dosage: LADDNINGSDOS 2 TABLETTER, D?REFTER 1 TABLETT.
  5. HEPARIN [Concomitant]
     Active Substance: HEPARIN SODIUM
  6. HEPARIN [Concomitant]
     Active Substance: HEPARIN SODIUM
  7. CANDESARTAN [Concomitant]
     Active Substance: CANDESARTAN
  8. CANDESARTAN [Concomitant]
     Active Substance: CANDESARTAN
  9. OMEPRAZOLE [Concomitant]
     Active Substance: OMEPRAZOLE
  10. OMEPRAZOLE [Concomitant]
     Active Substance: OMEPRAZOLE
  11. METOPROLOL [Concomitant]
     Active Substance: METOPROLOL
  12. METOPROLOL [Concomitant]
     Active Substance: METOPROLOL
  13. ASPIRIN [Concomitant]
     Active Substance: ASPIRIN
     Dosage: LADDNINGSDOS 4 TABLETTER, D?REFTER 1 TABLETT
  14. ASPIRIN [Concomitant]
     Active Substance: ASPIRIN
     Dosage: LADDNINGSDOS 4 TABLETTER, D?REFTER 1 TABLETT
  15. DIAZEPAM [Concomitant]
     Active Substance: DIAZEPAM
     Dosage: 5 MILLIGRAM
  16. DIAZEPAM [Concomitant]
     Active Substance: DIAZEPAM
     Dosage: 5 MILLIGRAM
  17. ATORVASTATIN [Concomitant]
     Active Substance: ATORVASTATIN
  18. ATORVASTATIN [Concomitant]
     Active Substance: ATORVASTATIN

REACTIONS (1)
  - Thrombocytopenia [Recovering/Resolving]
